FAERS Safety Report 7042511-9 (Version None)
Quarter: 2010Q4

REPORT INFORMATION
  Report Type: 
  Country: None (occurrence: None)
  Receive Date: 20101013
  Receipt Date: 20091006
  Transmission Date: 20110411
  Serious: No
  Sender: FDA-Public Use
  Company Number: US-ASTRAZENECA-2009SE18275

PATIENT
  Age: 45 Year
  Sex: Female

DRUGS (10)
  1. SYMBICORT [Suspect]
     Dosage: 80/4.5 TWO PUFFS
     Route: 055
  2. PREVACID [Concomitant]
  3. LANTUS [Concomitant]
  4. METFORMIN [Concomitant]
  5. GLYCOSIDE [Concomitant]
  6. RHINOCORT [Concomitant]
  7. PRAVACHOL [Concomitant]
  8. CITALOPRAM HYDROBROMIDE [Concomitant]
  9. REQUIP [Concomitant]
  10. ASPIRIN [Concomitant]

REACTIONS (3)
  - CONDITION AGGRAVATED [None]
  - DRUG INEFFECTIVE [None]
  - ORAL FUNGAL INFECTION [None]
